FAERS Safety Report 11835737 (Version 4)
Quarter: 2016Q1

REPORT INFORMATION
  Report Type: Report from Study
  Country: CA (occurrence: CA)
  Receive Date: 20151215
  Receipt Date: 20160208
  Transmission Date: 20160525
  Serious: Yes (Other)
  Sender: FDA-Public Use
  Company Number: CA-ROCHE-ITM201506IM018286

PATIENT
  Age: 61 Year
  Sex: Male
  Weight: 67.4 kg

DRUGS (9)
  1. TECTA [Concomitant]
     Active Substance: PANTOPRAZOLE MAGNESIUM
  2. PREDNISONE. [Concomitant]
     Active Substance: PREDNISONE
  3. ESBRIET [Suspect]
     Active Substance: PIRFENIDONE
     Route: 048
     Dates: start: 20150515, end: 20150915
  4. PANCREATIC ENZYMES [Concomitant]
     Active Substance: UNSPECIFIED INGREDIENT
  5. ESBRIET [Suspect]
     Active Substance: PIRFENIDONE
     Route: 048
     Dates: start: 20150508
  6. OXYGEN. [Concomitant]
     Active Substance: OXYGEN
  7. ESBRIET [Suspect]
     Active Substance: PIRFENIDONE
     Indication: IDIOPATHIC PULMONARY FIBROSIS
     Route: 048
     Dates: start: 20150501
  8. COLESTIPOL [Concomitant]
     Active Substance: COLESTIPOL
  9. TRAZODONE [Concomitant]
     Active Substance: TRAZODONE HYDROCHLORIDE

REACTIONS (14)
  - Pulmonary pain [Unknown]
  - Multiple allergies [Unknown]
  - Gait disturbance [Not Recovered/Not Resolved]
  - Diarrhoea [Not Recovered/Not Resolved]
  - Nasopharyngitis [Not Recovered/Not Resolved]
  - Dyspnoea [Unknown]
  - Forced vital capacity abnormal [Unknown]
  - Pulmonary oedema [Recovering/Resolving]
  - Bladder cancer [Recovering/Resolving]
  - Weight fluctuation [Recovered/Resolved]
  - Dyspepsia [Recovered/Resolved]
  - Nasopharyngitis [Unknown]
  - Weight decreased [Not Recovered/Not Resolved]
  - Decreased appetite [Unknown]

NARRATIVE: CASE EVENT DATE: 201505
